FAERS Safety Report 6648982-1 (Version None)
Quarter: 2010Q1

REPORT INFORMATION
  Report Type: 
  Country: None (occurrence: None)
  Receive Date: 20100324
  Receipt Date: 20100315
  Transmission Date: 20100710
  Serious: Yes (Other)
  Sender: FDA-Public Use
  Company Number: GXKR2010US03061

PATIENT
  Age: 19 Month
  Sex: Female

DRUGS (1)
  1. CYCLOBENZAPRINE (NGX) [Suspect]
     Route: 065

REACTIONS (10)
  - ABNORMAL BEHAVIOUR [None]
  - ACCIDENTAL EXPOSURE [None]
  - CONSTIPATION [None]
  - GAIT DISTURBANCE [None]
  - IRRITABILITY [None]
  - NERVOUS SYSTEM DISORDER [None]
  - RESTLESSNESS [None]
  - SCREAMING [None]
  - SOMNOLENCE [None]
  - VOMITING [None]
